FAERS Safety Report 10293204 (Version 2)
Quarter: 2014Q3

REPORT INFORMATION
  Report Type: Spontaneous
  Country: US (occurrence: US)
  Receive Date: 20140710
  Receipt Date: 20140710
  Transmission Date: 20150326
  Serious: No
  Sender: FDA-Public Use
  Company Number: US-PURDUE-USA-2013-0107703

PATIENT
  Sex: Female
  Weight: 56.69 kg

DRUGS (1)
  1. BUTRANS [Suspect]
     Active Substance: BUPRENORPHINE
     Indication: PRODUCT USED FOR UNKNOWN INDICATION
     Dosage: 10 MCG/HR, WEEKLY
     Route: 062

REACTIONS (5)
  - Application site erythema [Unknown]
  - Application site rash [Unknown]
  - Application site erosion [Unknown]
  - Product adhesion issue [Unknown]
  - Drug effect decreased [Unknown]
